FAERS Safety Report 12775739 (Version 2)
Quarter: 2016Q4

REPORT INFORMATION
  Report Type: Report from Study
  Country: BR (occurrence: BR)
  Receive Date: 20160923
  Receipt Date: 20161006
  Transmission Date: 20170207
  Serious: Yes (Other)
  Sender: FDA-Public Use
  Company Number: PHHY2016BR100220

PATIENT
  Sex: Male
  Weight: 48 kg

DRUGS (7)
  1. HYDREA [Concomitant]
     Active Substance: HYDROXYUREA
     Indication: SICKLE CELL ANAEMIA
     Dosage: 1 DF, QD
     Route: 048
     Dates: start: 2003
  2. IMIPRAMINA [Concomitant]
     Indication: AGITATION
     Dosage: 1 DF, QD
     Route: 048
     Dates: start: 2003
  3. FOLIC ACID. [Concomitant]
     Active Substance: FOLIC ACID
     Indication: SICKLE CELL ANAEMIA
     Dosage: 1 DF, QD
     Route: 048
     Dates: start: 2003
  4. POLARAMINE [Concomitant]
     Active Substance: DEXCHLORPHENIRAMINE MALEATE
     Indication: HYPERSENSITIVITY
     Dosage: 1 DF, QD
     Route: 065
  5. CARBAMAZEPINA [Concomitant]
     Active Substance: CARBAMAZEPINE
     Indication: AGITATION
     Dosage: 2 DF, QD
     Route: 048
     Dates: start: 2003
  6. RITALIN [Concomitant]
     Active Substance: METHYLPHENIDATE HYDROCHLORIDE
     Indication: PSYCHOMOTOR HYPERACTIVITY
     Dosage: 1 DF, QD
     Route: 048
     Dates: start: 2003
  7. EXJADE [Suspect]
     Active Substance: DEFERASIROX
     Indication: SICKLE CELL ANAEMIA
     Dosage: 46.5 MG/KG, QD (2 DF OF 500 MG BID, 1 IN THE MORNING AND OTHER IN THE AFTERNOON (MENTIONED EVERY 12)
     Route: 048

REACTIONS (4)
  - Motor dysfunction [Unknown]
  - Cerebrovascular accident [Unknown]
  - Insomnia [Unknown]
  - Inappropriate schedule of drug administration [Unknown]
